FAERS Safety Report 5749290-3 (Version None)
Quarter: 2008Q2

REPORT INFORMATION
  Report Type: 
  Country: None (occurrence: None)
  Receive Date: 20080527
  Receipt Date: 20080516
  Transmission Date: 20081010
  Serious: Yes (Other)
  Sender: FDA-Public Use
  Company Number: US-JNJFOC-20080503997

PATIENT
  Sex: Male
  Weight: 117.94 kg

DRUGS (8)
  1. DURAGESIC-100 [Suspect]
     Dosage: THREE 100 UG PATCHES
     Route: 062
  2. DURAGESIC-100 [Suspect]
     Indication: PAIN
     Route: 062
  3. ATENOLOL [Concomitant]
     Indication: BLOOD PRESSURE
     Route: 048
  4. ENALAPRIL MALEATE [Concomitant]
     Indication: BLOOD PRESSURE
     Route: 048
  5. LASIX [Concomitant]
     Indication: BLOOD PRESSURE
     Route: 048
  6. NORVASC [Concomitant]
     Indication: BLOOD PRESSURE
     Route: 048
  7. GABAPENTIN [Concomitant]
     Indication: NEURALGIA
     Route: 048
  8. INDOMETHACIN [Concomitant]
     Indication: NEURALGIA
     Route: 048

REACTIONS (9)
  - APPLICATION SITE DRYNESS [None]
  - APPLICATION SITE EXFOLIATION [None]
  - APPLICATION SITE IRRITATION [None]
  - APPLICATION SITE PRURITUS [None]
  - APPLICATION SITE REACTION [None]
  - BREAKTHROUGH PAIN [None]
  - DRUG ADMINISTERED AT INAPPROPRIATE SITE [None]
  - TYPE 2 DIABETES MELLITUS [None]
  - WRONG TECHNIQUE IN DRUG USAGE PROCESS [None]
